FAERS Safety Report 16591504 (Version 1)
Quarter: 2019Q3

REPORT INFORMATION
  Report Type: Spontaneous
  Country: CH (occurrence: CH)
  Receive Date: 20190718
  Receipt Date: 20190718
  Transmission Date: 20191004
  Serious: Yes (Death, Life-Threatening, Hospitalization, Other)
  Sender: FDA-Public Use
  Company Number: CH-TEVA-2019-CH-1078664

PATIENT
  Age: 84 Year
  Sex: Female

DRUGS (12)
  1. ATORVASTATIN MEPHA [Suspect]
     Active Substance: ATORVASTATIN
     Indication: CARDIOMYOPATHY
     Dosage: 40 MILLIGRAM DAILY;
     Route: 048
     Dates: start: 201406, end: 201609
  2. PRIVIGEN [Suspect]
     Active Substance: HUMAN IMMUNOGLOBULIN G
     Indication: MYOPATHY
     Dosage: 35 GRAM DAILY;
     Route: 042
     Dates: start: 20190205, end: 20190208
  3. ARAVA [Suspect]
     Active Substance: LEFLUNOMIDE
     Dosage: 10 MILLIGRAM DAILY; 1-0-0-0, STARTED AFTER 08.02.2019, MORE DETAILS NOT AVAILABLE
     Route: 048
     Dates: start: 20190209, end: 20190216
  4. METOPROLOL MEPHA ZOK [Concomitant]
     Active Substance: METOPROLOL SUCCINATE
     Dosage: 100 MILLIGRAM DAILY; 1-0-1-0
     Route: 048
  5. PANTOPRAZOL SANDOZ [Concomitant]
     Active Substance: PANTOPRAZOLE SODIUM
     Dosage: 40 MILLIGRAM DAILY; 1-0-0-0
     Route: 048
  6. CALCIMAGON D3 FORTE [Concomitant]
     Dosage: 1000 MG/800 IU
     Route: 048
  7. ELIQUIS [Concomitant]
     Active Substance: APIXABAN
     Dosage: 10 MILLIGRAM DAILY; 1-0-1-0
     Route: 048
  8. BACTRIM [Suspect]
     Active Substance: SULFAMETHOXAZOLE\TRIMETHOPRIM
     Indication: ANTIFUNGAL PROPHYLAXIS
     Dosage: SULFAMETHOXAZOLE 800MG/TRIMETHOPRIM160 MG, 1-0-0-0, ON MON., WED. AND FRI. FROM 05.02.2019 ONWARDS
     Route: 048
     Dates: start: 20190205, end: 20190216
  9. CIPRALEX [Concomitant]
     Active Substance: ESCITALOPRAM OXALATE
     Dosage: 10 MILLIGRAM DAILY; 1-0-0-0
     Route: 048
  10. ENTRESTO [Concomitant]
     Active Substance: SACUBITRIL\VALSARTAN
     Dosage: 100 MILLIGRAM DAILY; 1-0-1-0, SINCE UNKNOWN DATE, PAUSED IN JANUARY 2019
     Route: 048
     Dates: end: 201901
  11. SPIRICORT [Suspect]
     Active Substance: PREDNISOLONE
     Dosage: 50 MILLIGRAM DAILY; 1-0-0-0, ORAL, TAKEN FROM 05.02.2019 ONWARDS, EXACT END DATE NOT KNOWN
     Route: 048
     Dates: start: 20190205, end: 20190216
  12. ENTRESTO [Concomitant]
     Active Substance: SACUBITRIL\VALSARTAN
     Dosage: 100 MILLIGRAM DAILY; 1-0-1-0, SINCE UNKNOWN DATE, PAUSED IN JANUARY 2019 AND RESUMED IN FEBRUARY 201
     Route: 048
     Dates: start: 201902

REACTIONS (6)
  - Myositis [Fatal]
  - Hepatic enzyme increased [Not Recovered/Not Resolved]
  - Acute kidney injury [Not Recovered/Not Resolved]
  - Immune-mediated necrotising myopathy [Fatal]
  - Hepatic failure [Fatal]
  - Blood glucose increased [Not Recovered/Not Resolved]

NARRATIVE: CASE EVENT DATE: 201902
